FAERS Safety Report 17928438 (Version 2)
Quarter: 2020Q3

REPORT INFORMATION
  Report Type: Spontaneous
  Country: US (occurrence: US)
  Receive Date: 20200622
  Receipt Date: 20200703
  Transmission Date: 20201103
  Serious: Yes (Other)
  Sender: FDA-Public Use
  Company Number: US-009507513-1912USA011087

PATIENT

DRUGS (5)
  1. INLYTA [Suspect]
     Active Substance: AXITINIB
     Dosage: 7 MILLIGRAM
  2. KEYTRUDA [Suspect]
     Active Substance: PEMBROLIZUMAB
     Dosage: UNK
  3. INLYTA [Suspect]
     Active Substance: AXITINIB
     Dosage: 5 MILLIGRAM
  4. INLYTA [Suspect]
     Active Substance: AXITINIB
     Dosage: 3 MILLIGRAM
  5. INLYTA [Suspect]
     Active Substance: AXITINIB
     Dosage: 2 MILLIGRAM

REACTIONS (3)
  - Furuncle [Unknown]
  - Hepatotoxicity [Unknown]
  - Rash [Unknown]
